FAERS Safety Report 23764425 (Version 2)
Quarter: 2024Q2

REPORT INFORMATION
  Report Type: Spontaneous
  Country: FI (occurrence: FI)
  Receive Date: 20240420
  Receipt Date: 20240425
  Transmission Date: 20240716
  Serious: Yes (Disabling, Other)
  Sender: FDA-Public Use
  Company Number: None

PATIENT
  Age: 58 Year
  Sex: Male
  Weight: 74 kg

DRUGS (4)
  1. ORENCIA [Suspect]
     Active Substance: ABATACEPT
     Indication: Rheumatoid arthritis
     Route: 058
     Dates: start: 202311, end: 202311
  2. SULFASALAZINE [Concomitant]
     Active Substance: SULFASALAZINE
     Indication: Rheumatoid arthritis
     Dates: end: 20231128
  3. HYDROXYCHLOROQUINE SULFATE [Concomitant]
     Active Substance: HYDROXYCHLOROQUINE SULFATE
     Indication: Rheumatoid arthritis
     Route: 048
  4. CEPHALEXIN [Concomitant]
     Active Substance: CEPHALEXIN
     Indication: Device related infection
     Dosage: 750MG 1X3

REACTIONS (5)
  - Focal segmental glomerulosclerosis [Recovered/Resolved with Sequelae]
  - Nephrotic syndrome [Recovered/Resolved with Sequelae]
  - Haemolysis [Recovered/Resolved with Sequelae]
  - Acute kidney injury [Recovered/Resolved with Sequelae]
  - Renal tubular necrosis [Recovered/Resolved with Sequelae]

NARRATIVE: CASE EVENT DATE: 20231101
